FAERS Safety Report 11144335 (Version 4)
Quarter: 2015Q3

REPORT INFORMATION
  Report Type: Spontaneous
  Country: US (occurrence: US)
  Receive Date: 20150526
  Receipt Date: 20150731
  Transmission Date: 20151125
  Serious: Yes (Other)
  Sender: FDA-Public Use
  Company Number: US-PFIZER INC-2015170306

PATIENT
  Age: 73 Year
  Sex: Female
  Weight: 79 kg

DRUGS (35)
  1. COUMADIN [Concomitant]
     Active Substance: WARFARIN SODIUM
     Dosage: 28.5 MG, WEEKLY
     Route: 048
     Dates: start: 20150331
  2. OXYCONTIN [Concomitant]
     Active Substance: OXYCODONE HYDROCHLORIDE
     Dosage: 40 MG, EVERY 8 HOURS AS NEEDED
     Route: 048
     Dates: start: 20150416
  3. CYCLOSPORINE. [Concomitant]
     Active Substance: CYCLOSPORINE
     Dosage: 2 CAPSULES (25 MG EACH), 5 TIMES/DAY
     Route: 048
     Dates: start: 20140507
  4. FOLIC ACID. [Concomitant]
     Active Substance: FOLIC ACID
     Dosage: 1 MG, 2X/DAY
     Route: 048
     Dates: start: 20150225
  5. RANITIDINE [Concomitant]
     Active Substance: RANITIDINE\RANITIDINE HYDROCHLORIDE
     Dosage: 150 MG, DAILY
     Route: 048
     Dates: start: 20150225
  6. ACYCLOVIR. [Concomitant]
     Active Substance: ACYCLOVIR
     Dosage: 200 MG, 5 TIMES/DAY AS NEEDED
     Route: 048
     Dates: start: 20150227
  7. CLINDAMYCIN HYDROCHLORIDE. [Concomitant]
     Active Substance: CLINDAMYCIN HYDROCHLORIDE
     Dosage: 300 MG, DAILY
     Route: 048
  8. ZYVOX [Suspect]
     Active Substance: LINEZOLID
     Indication: CELLULITIS
     Dosage: 600 MG, 2X/DAY
     Route: 048
     Dates: start: 20150507, end: 20150516
  9. VOLTAREN [Concomitant]
     Active Substance: DICLOFENAC SODIUM
     Indication: ARTHRALGIA
     Dosage: 1 APPLICATION AS NEEDED
     Route: 061
     Dates: start: 20150225
  10. NEURONTIN [Concomitant]
     Active Substance: GABAPENTIN
     Dosage: 800 MG, 2X/DAY
     Route: 048
     Dates: start: 20140528
  11. CLONAZEPAM. [Concomitant]
     Active Substance: CLONAZEPAM
     Indication: SEIZURE
     Dosage: 1 MG, DAILY AS NEEDED AT ONSET OF SEIZURE/AURA
     Route: 048
     Dates: start: 20150113
  12. CHOLECALCIFEROL [Concomitant]
     Active Substance: CHOLECALCIFEROL
     Dosage: 1000 IU, DAILY
     Route: 048
     Dates: start: 20150225
  13. LEVAQUIN [Concomitant]
     Active Substance: LEVOFLOXACIN
     Dosage: 500 MG, DAILY
     Route: 048
  14. POTASSIUM CHLORIDE. [Concomitant]
     Active Substance: POTASSIUM CHLORIDE
     Dosage: 10 MEQ, 2X/DAY (WHILE ON INCREASED DOSE OF LASIX)
     Route: 048
     Dates: start: 20150506
  15. PREVACID [Concomitant]
     Active Substance: LANSOPRAZOLE
     Indication: GASTROOESOPHAGEAL REFLUX DISEASE
     Dosage: 30 MG, 1X/DAY (1 TABLET EVERY MORNING)
     Route: 048
     Dates: start: 20140528
  16. VENTOLIN HFA [Concomitant]
     Active Substance: ALBUTEROL SULFATE
     Dosage: 2 INHALATION (90 ?G EACH, EVERY 3-6 HRS AS NEEDED SOB
     Dates: start: 20141121
  17. ACETAMINOPHEN W/HYDROCODONE [Concomitant]
     Active Substance: ACETAMINOPHEN\HYDROCODONE
     Indication: PAIN
     Dosage: 1 TABLET EVERY 4 HOURS AS NEEDED
     Route: 048
     Dates: start: 20150126
  18. MINOXIDIL. [Concomitant]
     Active Substance: MINOXIDIL
     Indication: HAIR GROWTH ABNORMAL
     Dosage: 1 APPLICATION, DAILY
     Route: 061
     Dates: start: 20150225
  19. GUAIFENESIN. [Concomitant]
     Active Substance: GUAIFENESIN
     Indication: COUGH
     Dosage: 1 TO 2 TABLETS AS NEEDED
     Route: 048
     Dates: start: 20150227
  20. PREDNISONE. [Concomitant]
     Active Substance: PREDNISONE
     Dosage: AT 1 TO 5 TABLETS (1 MG EACH) IN CONJUNCTION WITH 5 MG TABLETS AS NEEDED
     Dates: start: 20150227
  21. COUMADIN [Concomitant]
     Active Substance: WARFARIN SODIUM
     Dosage: 3 MG, UNK (3 MG ORAL TABLET, 27 MG/WEEK, ORAL, EVERY WEEK)
     Route: 048
     Dates: start: 20150401
  22. SALINE SOLUTION [Concomitant]
     Active Substance: SODIUM CHLORIDE
     Dosage: 1 SPRAY DAILY
     Dates: start: 20150414
  23. DYMISTA [Concomitant]
     Active Substance: AZELASTINE HYDROCHLORIDE\FLUTICASONE PROPIONATE
     Dosage: AT 1 SPRAY TWICE DAILY
     Route: 045
     Dates: start: 20150422
  24. MACROBID [Concomitant]
     Active Substance: NITROFURANTOIN\NITROFURANTOIN MONOHYDRATE
     Indication: PROPHYLAXIS
     Dosage: 100 MG, 2X/DAY
     Route: 048
  25. METHOTREXATE SODIUM. [Concomitant]
     Active Substance: METHOTREXATE SODIUM
     Dosage: 2.5 MG, UNK (EVERY WEEK TAKES 2 TAB ON TUESDAY)
     Route: 048
     Dates: start: 20140507
  26. LASIX [Concomitant]
     Active Substance: FUROSEMIDE
     Indication: SWELLING
     Dosage: 1-2 TABS (20 MG EACH), DAILY AS NEEDED
     Route: 048
     Dates: start: 20140922
  27. CARBIDOPA AND LEVODOPA [Concomitant]
     Active Substance: CARBIDOPA\LEVODOPA
     Dosage: 1 TABLET WEEKLY AS NEEDED
     Route: 048
     Dates: start: 20150422
  28. ADVAIR DISKUS [Concomitant]
     Active Substance: FLUTICASONE PROPIONATE\SALMETEROL XINAFOATE
     Dosage: 1 PUFF TWICE DAILY
     Route: 055
     Dates: start: 20150422
  29. IPRATROPIUM/ALBUTEROL [Concomitant]
     Active Substance: ALBUTEROL\IPRATROPIUM
     Dosage: 1 VIAL TWICE DAILY AS NEEDED
     Route: 055
     Dates: start: 20150422
  30. PREDNISONE. [Concomitant]
     Active Substance: PREDNISONE
     Dosage: 0.5 TABLET (10 MG EACH), DAILY
     Route: 048
     Dates: start: 20141030
  31. LEVOFLOXACIN. [Concomitant]
     Active Substance: LEVOFLOXACIN
     Indication: INFECTION
     Dosage: 500 MG, DAILY
     Route: 048
     Dates: start: 20141121
  32. MONTELUKAST [Concomitant]
     Active Substance: MONTELUKAST SODIUM
     Indication: PAIN
     Dosage: 10 MG, DAILY
     Route: 048
     Dates: start: 20141219
  33. NYSTATIN. [Concomitant]
     Active Substance: NYSTATIN
     Dosage: 5 ML, 2X/DAY
     Route: 048
     Dates: start: 20150128
  34. MIRALAX [Concomitant]
     Active Substance: POLYETHYLENE GLYCOL 3350
     Indication: CONSTIPATION
     Dosage: 17 G, AS NEEDED (17 GRAM/DOSE ORAL POWDER)
     Route: 048
     Dates: start: 20150225
  35. BACTROBAN [Concomitant]
     Active Substance: MUPIROCIN\MUPIROCIN CALCIUM
     Dosage: 1 APPLICATION, 2X/DAY
     Route: 061
     Dates: start: 20150422

REACTIONS (16)
  - Drug effect incomplete [Unknown]
  - Cellulitis [Not Recovered/Not Resolved]
  - Disease progression [Not Recovered/Not Resolved]
  - Medication residue present [Unknown]
  - Product solubility abnormal [Unknown]
  - Malabsorption [Unknown]
  - Disease recurrence [Unknown]
  - Product formulation issue [Unknown]
  - Swelling [Unknown]
  - Oedema [Unknown]
  - Urine analysis abnormal [Unknown]
  - Wrong technique in product usage process [Unknown]
  - Erythema [Unknown]
  - Headache [Unknown]
  - Skin burning sensation [Unknown]
  - Lymphoedema [Unknown]
